FAERS Safety Report 11258155 (Version 1)
Quarter: 2015Q3

REPORT INFORMATION
  Report Type: Spontaneous
  Country: US (occurrence: None)
  Receive Date: 20150626
  Receipt Date: 20150626
  Transmission Date: 20151125
  Serious: Yes (Other)
  Sender: FDA-Public Use
  Company Number: PHEH2014US014039

PATIENT

DRUGS (1)
  1. SIMULECT [Suspect]
     Active Substance: BASILIXIMAB
     Indication: LIVER TRANSPLANT

REACTIONS (1)
  - Post procedural persistent drain fluid [None]
